FAERS Safety Report 11883705 (Version 1)
Quarter: 2016Q1

REPORT INFORMATION
  Report Type: Spontaneous
  Country: US (occurrence: US)
  Receive Date: 20160101
  Receipt Date: 20160101
  Transmission Date: 20160526
  Serious: No
  Sender: FDA-Public Use
  Company Number: PHEH2015US027457

PATIENT
  Age: 52 Year
  Sex: Female

DRUGS (4)
  1. MINIVELLE [Concomitant]
     Active Substance: ESTRADIOL
     Indication: HOT FLUSH
     Route: 062
  2. VIVELLE-DOT [Suspect]
     Active Substance: ESTRADIOL
     Dosage: 0.037 MG, UNK
     Route: 062
  3. VIVELLE-DOT [Suspect]
     Active Substance: ESTRADIOL
     Indication: NIGHT SWEATS
     Dosage: 0.05 MG, UNK
     Route: 062
  4. VIVELLE-DOT [Suspect]
     Active Substance: ESTRADIOL
     Indication: HOT FLUSH
     Dosage: 0.075 MG, UNK
     Route: 062

REACTIONS (9)
  - Rash [Unknown]
  - Blood oestrogen increased [Unknown]
  - Migraine [Unknown]
  - Wrong technique in product usage process [Unknown]
  - Crying [Unknown]
  - Arthralgia [Unknown]
  - Malaise [Unknown]
  - Headache [Unknown]
  - Anxiety [Unknown]
